FAERS Safety Report 19507007 (Version 1)
Quarter: 2021Q3

REPORT INFORMATION
  Report Type: Other
  Country: US (occurrence: US)
  Receive Date: 20210708
  Receipt Date: 20210708
  Transmission Date: 20211014
  Serious: Yes (Other)
  Sender: FDA-Public Use
  Company Number: US-ROCHE-2089791

PATIENT
  Sex: Female

DRUGS (13)
  1. CELLCEPT [Suspect]
     Active Substance: MYCOPHENOLATE MOFETIL\MYCOPHENOLATE MOFETIL HYDROCHLORIDE
     Route: 048
  2. RITUXAN [Suspect]
     Active Substance: RITUXIMAB
     Indication: PRODUCT USED FOR UNKNOWN INDICATION
     Dosage: MOST RESENT DOSE 10/DEC/2019
     Route: 065
  3. VITAMIN D3 [Concomitant]
     Active Substance: CHOLECALCIFEROL
     Indication: VITAMIN D DEFICIENCY
     Dosage: 1000 UNITS
     Route: 048
  4. ZOCOR [Concomitant]
     Active Substance: SIMVASTATIN
     Route: 048
  5. SPIRIVA [Concomitant]
     Active Substance: TIOTROPIUM BROMIDE MONOHYDRATE
     Indication: CHRONIC OBSTRUCTIVE PULMONARY DISEASE
     Dosage: INHALE 18 MCG INTO THE LUNGS DAILY
  6. IMURAN [Concomitant]
     Active Substance: AZATHIOPRINE
     Dosage: 2 TABLETS
     Route: 048
  7. DEXTRAN 70 [Concomitant]
     Active Substance: DEXTRAN 70
     Dosage: 1 DROP IN BOTH EYES AS NEEDED
  8. MEDROL [Concomitant]
     Active Substance: METHYLPREDNISOLONE
  9. ADVIL [Concomitant]
     Active Substance: IBUPROFEN
     Route: 048
  10. SPIRIVA [Concomitant]
     Active Substance: TIOTROPIUM BROMIDE MONOHYDRATE
     Indication: BRONCHOSPASM
  11. CELLCEPT [Suspect]
     Active Substance: MYCOPHENOLATE MOFETIL\MYCOPHENOLATE MOFETIL HYDROCHLORIDE
     Indication: GRANULOMATOSIS WITH POLYANGIITIS
     Route: 048
  12. PRED FORTE [Concomitant]
     Active Substance: PREDNISOLONE ACETATE
     Dosage: PLACE 1 DROP IN LEFT EYE
  13. ROMYCIN [ERYTHROMYCIN] [Concomitant]
     Dosage: APPLY 1 CM RIBBON OF OINTMENT TO AFFECTED EYES UP TO 6 TIMES DAILY

REACTIONS (15)
  - Nose deformity [Unknown]
  - Musculoskeletal stiffness [Unknown]
  - Peripheral sensory neuropathy [Unknown]
  - Staphylococcal infection [Recovered/Resolved]
  - Dyspnoea [Unknown]
  - Joint swelling [Unknown]
  - Burning sensation [Unknown]
  - Peripheral swelling [Unknown]
  - Vision blurred [Unknown]
  - Skin lesion [Unknown]
  - Off label use [Unknown]
  - Pneumonia [Unknown]
  - Eye inflammation [Unknown]
  - Nasal crusting [Unknown]
  - Pain [Unknown]
